FAERS Safety Report 6457053-9 (Version None)
Quarter: 2009Q4

REPORT INFORMATION
  Report Type: 
  Country: None (occurrence: None)
  Receive Date: 20091125
  Receipt Date: 20091118
  Transmission Date: 20100525
  Serious: Yes (Hospitalization)
  Sender: FDA-Public Use
  Company Number: A0818314A

PATIENT
  Age: 78 Year
  Sex: Male

DRUGS (14)
  1. LEUCOVORIN CALCIUM [Suspect]
     Route: 042
     Dates: start: 20090424
  2. ONDANSETRON [Suspect]
  3. PROCHLORPERAZINE [Suspect]
  4. FLUOROURACIL [Suspect]
     Route: 042
  5. OXALIPLATIN [Suspect]
     Route: 042
     Dates: start: 20090424
  6. BEVACIZUMAB [Suspect]
     Dosage: 5MGK EVERY TWO WEEKS
     Route: 042
     Dates: start: 20090424
  7. LORAZEPAM [Suspect]
  8. BLINDED STUDY MEDICATION [Concomitant]
     Route: 042
     Dates: start: 20090424
  9. CIPROFLOXACIN [Concomitant]
  10. FLUDROCORTISONE [Concomitant]
  11. PANCREATIN [Concomitant]
  12. ASPIRIN [Concomitant]
  13. ATORVASTATIN [Concomitant]
  14. INSULIN [Concomitant]

REACTIONS (2)
  - FATIGUE [None]
  - NAUSEA [None]
